FAERS Safety Report 18253393 (Version 1)
Quarter: 2020Q3

REPORT INFORMATION
  Report Type: Spontaneous
  Country: CN (occurrence: CN)
  Receive Date: 20200910
  Receipt Date: 20200910
  Transmission Date: 20201103
  Serious: Yes (Life-Threatening)
  Sender: FDA-Public Use
  Company Number: CN-PFIZER INC-2020349864

PATIENT
  Age: 18 Year
  Sex: Female
  Weight: 75 kg

DRUGS (1)
  1. HEMABATE [Suspect]
     Active Substance: CARBOPROST TROMETHAMINE
     Indication: UTERINE CONTRACTIONS ABNORMAL
     Dosage: 250 UG, 1X/DAY
     Route: 019
     Dates: start: 20200907, end: 20200907

REACTIONS (4)
  - Product use issue [Unknown]
  - Dyspnoea [Recovered/Resolved]
  - Lung disorder [Recovered/Resolved]
  - Off label use [Unknown]

NARRATIVE: CASE EVENT DATE: 20200907
